FAERS Safety Report 5757769-3 (Version None)
Quarter: 2008Q2

REPORT INFORMATION
  Report Type: 
  Country: None (occurrence: None)
  Receive Date: 20080529
  Receipt Date: 20080516
  Transmission Date: 20081010
  Serious: Yes (Disabling)
  Sender: FDA-Public Use
  Company Number: TPH-00043

PATIENT
  Age: 31 Year
  Sex: Female

DRUGS (2)
  1. TRIQUILAR [Suspect]
     Indication: MENSTRUATION IRREGULAR
     Dosage: 1 DF ORAL
     Route: 048
     Dates: start: 20080101, end: 20080401
  2. TRIQUILAR [Suspect]
     Indication: ORAL CONTRACEPTION
     Dosage: 1 DF ORAL
     Route: 048
     Dates: start: 20080101, end: 20080401

REACTIONS (2)
  - DYSLALIA [None]
  - HYPOAESTHESIA [None]
